FAERS Safety Report 23723394 (Version 1)
Quarter: 2024Q2

REPORT INFORMATION
  Report Type: Spontaneous
  Country: US (occurrence: US)
  Receive Date: 20240409
  Receipt Date: 20240409
  Transmission Date: 20240716
  Serious: No
  Sender: FDA-Public Use
  Company Number: US-PADAGIS-2024PAD00477

PATIENT

DRUGS (3)
  1. EVAMIST [Suspect]
     Active Substance: ESTRADIOL
     Indication: Menopausal symptoms
     Dosage: 1.53, QD
     Route: 065
     Dates: start: 20240318
  2. ESTROGENS [Concomitant]
     Active Substance: ESTROGENS
     Indication: Menopausal symptoms
     Dosage: UNK, (PELLETS)
     Route: 065
     Dates: start: 202309, end: 20240308
  3. ESTROGENS [Concomitant]
     Active Substance: ESTROGENS
     Dosage: UNK, (PATCH)
     Route: 065
     Dates: end: 2023

REACTIONS (4)
  - Night sweats [Unknown]
  - Hot flush [Unknown]
  - Incorrect dose administered [Unknown]
  - Device connection issue [Unknown]

NARRATIVE: CASE EVENT DATE: 20240319
